FAERS Safety Report 14496795 (Version 2)
Quarter: 2018Q2

REPORT INFORMATION
  Report Type: Spontaneous
  Country: US (occurrence: US)
  Receive Date: 20180207
  Receipt Date: 20180507
  Transmission Date: 20180711
  Serious: No
  Sender: FDA-Public Use
  Company Number: US-PFIZER INC-2018048765

PATIENT
  Age: 44 Year
  Sex: Male

DRUGS (1)
  1. EUCRISA [Suspect]
     Active Substance: CRISABOROLE
     Indication: PRURITUS
     Dosage: APPLY TO AFFECTED AREA DAILY AS NEEDED

REACTIONS (2)
  - Product use in unapproved indication [Unknown]
  - Application site erythema [Unknown]
